FAERS Safety Report 9870879 (Version 5)
Quarter: 2014Q3

REPORT INFORMATION
  Report Type: Spontaneous
  Country: JP (occurrence: None)
  Receive Date: 20140203
  Receipt Date: 20140707
  Transmission Date: 20150326
  Serious: Yes (Hospitalization)
  Sender: FDA-Public Use
  Company Number: AXC-2014-000062

PATIENT
  Age: 33 Year
  Sex: Female

DRUGS (6)
  1. NEOMALLERMIN TR (DEXCHLORPHENIRAMINE MALEATE) [Concomitant]
     Active Substance: DEXCHLORPHENIRAMINE MALEATE
  2. URSODEOXYCHOLIC ACID (URSODEOXYCHOLIC ACID) TABLET, 100MG [Suspect]
     Active Substance: URSODIOL
     Indication: CHOLESTASIS
     Route: 048
     Dates: start: 20131205, end: 20140108
  3. OHSUGI INCHINKOTO EXTRACT GRANULES [Concomitant]
  4. PRAVASTATIN SODIUM. [Concomitant]
     Active Substance: PRAVASTATIN SODIUM
  5. TAURINE [Concomitant]
     Active Substance: TAURINE
  6. ATARAX-P [Concomitant]
     Active Substance: HYDROXYZINE HYDROCHLORIDE

REACTIONS (5)
  - Hepatitis cholestatic [None]
  - Jaundice [None]
  - Blood bilirubin increased [None]
  - Cholestasis [None]
  - Hepatic function abnormal [None]
